FAERS Safety Report 12680958 (Version 2)
Quarter: 2016Q3

REPORT INFORMATION
  Report Type: Spontaneous
  Country: IN (occurrence: IN)
  Receive Date: 20160824
  Receipt Date: 20160830
  Transmission Date: 20161109
  Serious: Yes (Life-Threatening)
  Sender: FDA-Public Use
  Company Number: IN-GE HEALTHCARE MEDICAL DIAGNOSTICS-OMPQ-PR-1608S-1466

PATIENT
  Age: 82 Year
  Sex: Female
  Weight: 69 kg

DRUGS (6)
  1. LACTATED RINGERS [Concomitant]
     Active Substance: CALCIUM CHLORIDE\POTASSIUM CHLORIDE\SODIUM CHLORIDE\SODIUM LACTATE
     Route: 042
  2. OMNIPAQUE [Suspect]
     Active Substance: IOHEXOL
     Indication: PRODUCT USED FOR UNKNOWN INDICATION
     Route: 042
     Dates: start: 20160817, end: 20160817
  3. OMNIPAQUE [Suspect]
     Active Substance: IOHEXOL
     Indication: DIAGNOSTIC PROCEDURE
  4. ONDANSETRON [Concomitant]
     Active Substance: ONDANSETRON
     Route: 030
  5. OMNIPAQUE [Suspect]
     Active Substance: IOHEXOL
     Dosage: DOSE NOT REPORTED
     Route: 054
     Dates: start: 20160817, end: 20160817
  6. PANTOPRAZOLE [Concomitant]
     Active Substance: PANTOPRAZOLE SODIUM
     Route: 042

REACTIONS (6)
  - Eye movement disorder [Unknown]
  - Hypotension [Unknown]
  - Chills [Unknown]
  - Vomiting [Unknown]
  - Unresponsive to stimuli [Unknown]
  - Dyspnoea [Unknown]

NARRATIVE: CASE EVENT DATE: 20160817
